FAERS Safety Report 5420584-4 (Version None)
Quarter: 2007Q3

REPORT INFORMATION
  Report Type: 
  Country: None (occurrence: None)
  Receive Date: 20070816
  Receipt Date: 20070720
  Transmission Date: 20080115
  Serious: Yes (Other)
  Sender: FDA-Public Use
  Company Number: 6036227

PATIENT
  Age: 67 Year
  Sex: Male

DRUGS (2)
  1. FLUCONAZOLE [Suspect]
     Indication: PNEUMONIA
     Dosage: INTRAVENOUS (NOT OTHERWISE SPECIFIED)
  2. PANIPENEM_BETAMIPRON(BETAMIPRON, PANIPENEM) [Concomitant]

REACTIONS (2)
  - DRUG INTERACTION [None]
  - PANCREATITIS [None]
